FAERS Safety Report 17706667 (Version 1)
Quarter: 2020Q2

REPORT INFORMATION
  Report Type: Spontaneous
  Country: FR (occurrence: FR)
  Receive Date: 20200424
  Receipt Date: 20200424
  Transmission Date: 20200714
  Serious: Yes (Life-Threatening)
  Sender: FDA-Public Use
  Company Number: FR-US-PROVELL PHARMACEUTICALS LLC-8182377

PATIENT
  Age: 72 Year
  Sex: Male
  Weight: 64 kg

DRUGS (7)
  1. DANATROL [Suspect]
     Active Substance: DANAZOL
     Indication: IMMUNE THROMBOCYTOPENIA
     Route: 048
     Dates: start: 20170413
  2. DANATROL [Suspect]
     Active Substance: DANAZOL
     Dosage: DOSE REDUCED?UNKNOWN DOSAGE
  3. PREDNISONE. [Suspect]
     Active Substance: PREDNISONE
     Route: 048
     Dates: start: 20170701, end: 201707
  4. PERMIXON [Suspect]
     Active Substance: HERBALS\SAW PALMETTO
     Indication: BENIGN PROSTATIC HYPERPLASIA
     Route: 048
  5. LEVOTHYROX 75 [Suspect]
     Active Substance: LEVOTHYROXINE
     Indication: HYPOTHYROIDISM
     Dosage: SCORED TABLET
     Route: 048
     Dates: end: 201707
  6. PREVISCAN (FLUINDIONE) [Suspect]
     Active Substance: FLUINDIONE
     Indication: CARDIAC VALVE PROSTHESIS USER
     Dosage: SCORED TABLET
     Route: 048
     Dates: end: 20170701
  7. PREDNISONE. [Suspect]
     Active Substance: PREDNISONE
     Indication: IMMUNE THROMBOCYTOPENIA
     Route: 048
     Dates: start: 201702

REACTIONS (3)
  - Non-cirrhotic portal hypertension [Recovering/Resolving]
  - Nodular regenerative hyperplasia [Recovering/Resolving]
  - Oesophageal varices haemorrhage [Recovered/Resolved]

NARRATIVE: CASE EVENT DATE: 20170627
